FAERS Safety Report 14368129 (Version 2)
Quarter: 2018Q1

REPORT INFORMATION
  Report Type: Report from Study
  Country: US (occurrence: US)
  Receive Date: 20180109
  Receipt Date: 20180319
  Transmission Date: 20180509
  Serious: Yes (Death, Other)
  Sender: FDA-Public Use
  Company Number: US-REGENERON PHARMACEUTICALS, INC.-2018-10231

PATIENT

DRUGS (1)
  1. EYLEA [Suspect]
     Active Substance: AFLIBERCEPT
     Indication: MACULAR DEGENERATION
     Dosage: 2 MG/0.05 ML, 1 EVERY 4 WEEKS
     Route: 031
     Dates: start: 20160224, end: 20171129

REACTIONS (1)
  - Death [Fatal]

NARRATIVE: CASE EVENT DATE: 20171226
